FAERS Safety Report 21876918 (Version 1)
Quarter: 2023Q1

REPORT INFORMATION
  Report Type: Other
  Country: CN (occurrence: None)
  Receive Date: 20230118
  Receipt Date: 20230118
  Transmission Date: 20230417
  Serious: Yes (Other)
  Sender: FDA-Public Use
  Company Number: CN-ROCHE-3265208

PATIENT
  Age: 47 Year
  Sex: Female

DRUGS (2)
  1. CAPECITABINE [Suspect]
     Active Substance: CAPECITABINE
     Indication: Colon cancer
     Dosage: D1-14. EVERY 3 WEEKS IN 8 DOSES FOR A TOTAL OF 6 MONTHS.
     Route: 065
     Dates: start: 20170317
  2. OXALIPLATIN [Suspect]
     Active Substance: OXALIPLATIN
     Indication: Colon cancer
     Dosage: D1
     Route: 065
     Dates: start: 20170317

REACTIONS (3)
  - Metastases to peritoneum [Unknown]
  - Pancreatic carcinoma metastatic [Unknown]
  - Disease progression [Unknown]
